FAERS Safety Report 5968763-1 (Version None)
Quarter: 2008Q4

REPORT INFORMATION
  Report Type: 
  Country: None (occurrence: None)
  Receive Date: 20081119
  Receipt Date: 20081016
  Transmission Date: 20090506
  Serious: No
  Sender: FDA-Public Use
  Company Number: WAES 0810USA03297

PATIENT
  Sex: Female

DRUGS (3)
  1. JANUVIA [Suspect]
     Dosage: PO
     Route: 048
  2. ASPIRIN [Suspect]
  3. ANALGESIC (UNSPECIFIED) UNK [Suspect]

REACTIONS (2)
  - INTESTINAL OBSTRUCTION [None]
  - SOMNOLENCE [None]
